FAERS Safety Report 12723479 (Version 2)
Quarter: 2016Q4

REPORT INFORMATION
  Report Type: Spontaneous
  Country: US (occurrence: US)
  Receive Date: 20160908
  Receipt Date: 20161212
  Transmission Date: 20170207
  Serious: No
  Sender: FDA-Public Use
  Company Number: US-PFIZER INC-2016419078

PATIENT
  Sex: Male

DRUGS (1)
  1. VIAGRA [Suspect]
     Active Substance: SILDENAFIL CITRATE
     Indication: ERECTILE DYSFUNCTION
     Dosage: 100 MG, (100MG, TABLET, ORAL, ONCE A WEEK)
     Route: 048

REACTIONS (3)
  - Poor quality drug administered [Unknown]
  - Drug effect decreased [Unknown]
  - Product quality issue [Unknown]
